FAERS Safety Report 8302758-8 (Version None)
Quarter: 2012Q2

REPORT INFORMATION
  Report Type: 
  Country: None (occurrence: None)
  Receive Date: 20120420
  Receipt Date: 20110825
  Transmission Date: 20120825
  Serious: No
  Sender: FDA-Public Use
  Company Number: US-PFIZER INC-K201100994

PATIENT
  Sex: Female
  Weight: 68.027 kg

DRUGS (8)
  1. TAPAZOLE [Suspect]
     Indication: BASEDOW'S DISEASE
     Dosage: UNK
     Route: 048
     Dates: start: 20110101, end: 20110101
  2. TOPAMAX [Concomitant]
     Indication: MIGRAINE
     Dosage: 150 MG, 1X/DAY
     Route: 048
  3. VICODIN [Concomitant]
     Indication: NECK PAIN
     Dosage: AS NEEDED
     Route: 048
  4. VICODIN [Concomitant]
     Indication: BACK PAIN
  5. TRAZODONE [Concomitant]
     Indication: SLEEP DISORDER
     Dosage: 300 MG, 1X/DAY
     Route: 048
  6. VERAPAMIL [Concomitant]
     Indication: MIGRAINE
     Dosage: 240 MG, 1X/DAY
     Route: 048
  7. PERCOCET [Concomitant]
     Indication: BACK PAIN
  8. PERCOCET [Concomitant]
     Indication: NECK PAIN
     Dosage: AS NEEDED
     Route: 048

REACTIONS (4)
  - HYPERSENSITIVITY [None]
  - GASTROOESOPHAGEAL REFLUX DISEASE [None]
  - EROSIVE OESOPHAGITIS [None]
  - HEART RATE INCREASED [None]
